FAERS Safety Report 5477958-5 (Version None)
Quarter: 2007Q4

REPORT INFORMATION
  Report Type: 
  Country: None (occurrence: None)
  Receive Date: 20071005
  Receipt Date: 20070924
  Transmission Date: 20080405
  Serious: Yes (Hospitalization)
  Sender: FDA-Public Use
  Company Number: US-JNJFOC-20070905423

PATIENT
  Age: 27 Year
  Sex: Female

DRUGS (8)
  1. DURAGESIC-100 [Suspect]
     Indication: PAIN
     Route: 062
  2. OXYCO/APAP [Concomitant]
     Indication: PAIN
     Route: 065
  3. SOMA [Concomitant]
     Route: 048
  4. CYMBALTA [Concomitant]
     Route: 048
  5. UNSPECIFIED MEDICATION [Concomitant]
     Indication: ANTACID THERAPY
     Route: 048
  6. NEXIUM [Concomitant]
     Route: 048
  7. AMBIEN CR [Concomitant]
     Route: 048
  8. CLONAZEPAM [Concomitant]
     Route: 048

REACTIONS (10)
  - ABDOMINAL SYMPTOM [None]
  - AMNESIA [None]
  - APHONIA [None]
  - CONFUSIONAL STATE [None]
  - DIZZINESS [None]
  - DYSARTHRIA [None]
  - EMOTIONAL DISORDER [None]
  - GAIT DISTURBANCE [None]
  - GASTRIC DISORDER [None]
  - NONSPECIFIC REACTION [None]
